FAERS Safety Report 14917418 (Version 1)
Quarter: 2018Q2

REPORT INFORMATION
  Report Type: Spontaneous
  Country: US (occurrence: US)
  Receive Date: 20180521
  Receipt Date: 20180521
  Transmission Date: 20180711
  Serious: No
  Sender: FDA-Public Use
  Company Number: US-TEVA-2018-US-873033

PATIENT
  Age: 51 Year
  Sex: Male

DRUGS (1)
  1. CISPLATIN. [Suspect]
     Active Substance: CISPLATIN
     Indication: SQUAMOUS CELL CARCINOMA OF SKIN
     Dosage: TOTAL 7 DOSES; 6 DOSES CONCURRENTLY WITH THE RADIATION THERAPY, AND THE SEVENTH DOSE ADMINISTERED...
     Route: 042

REACTIONS (1)
  - Skin exfoliation [Recovering/Resolving]
